FAERS Safety Report 5029239-1 (Version None)
Quarter: 2006Q2

REPORT INFORMATION
  Report Type: 
  Country: None (occurrence: None)
  Receive Date: 20060613
  Receipt Date: 20060526
  Transmission Date: 20061013
  Serious: Yes (Hospitalization)
  Sender: FDA-Public Use
  Company Number: US-2006-011379

PATIENT
  Age: 35 Year
  Sex: Female
  Weight: 104.3 kg

DRUGS (17)
  1. BETASERON [Suspect]
     Indication: RELAPSING-REMITTING MULTIPLE SCLEROSIS
     Dosage: EVERY 2D, SUBCUTANEOUS
     Route: 058
     Dates: start: 20050128, end: 20060509
  2. MULTIVITAMIN [Concomitant]
  3. EXCEDRIN (MIGRAINE) [Concomitant]
  4. DEPO-PROVERA SUSPENSION/INJ [Concomitant]
  5. BENICAR [Concomitant]
  6. WELLBUTRIN SR [Concomitant]
  7. IBUPROFEN [Concomitant]
  8. NAPROXEN [Concomitant]
  9. YASMIN [Concomitant]
  10. AMITRIPTYLINE HCL [Concomitant]
  11. TYLENOL (CAPLET) [Concomitant]
  12. BENADRYL [Concomitant]
  13. VALSARTAN [Concomitant]
  14. SIBUTRAMINE [Concomitant]
  15. SULFAMETHOXAZOLE + TRIMETHOPRIM [Concomitant]
  16. LEVAQUIN [Concomitant]
  17. COPAXONE [Suspect]

REACTIONS (25)
  - AUTOIMMUNE DISORDER [None]
  - BLOOD PRESSURE DECREASED [None]
  - BODY TEMPERATURE INCREASED [None]
  - CONDITION AGGRAVATED [None]
  - DIZZINESS [None]
  - ELECTROCARDIOGRAM T WAVE ABNORMAL [None]
  - GOITRE [None]
  - HYPERHIDROSIS [None]
  - HYPERTHYROIDISM [None]
  - INCREASED APPETITE [None]
  - METRORRHAGIA [None]
  - NAUSEA [None]
  - PAIN IN EXTREMITY [None]
  - PALLOR [None]
  - PALPITATIONS [None]
  - RETCHING [None]
  - SENSORY LOSS [None]
  - SINUS TACHYCARDIA [None]
  - SPEECH DISORDER [None]
  - TACHYCARDIA [None]
  - TEMPERATURE INTOLERANCE [None]
  - TREMOR [None]
  - URINARY RETENTION [None]
  - VISION BLURRED [None]
  - WEIGHT INCREASED [None]
